FAERS Safety Report 9147026 (Version 6)
Quarter: 2013Q4

REPORT INFORMATION
  Report Type: Report from Study
  Country: CA (occurrence: CA)
  Receive Date: 20130307
  Receipt Date: 20131008
  Transmission Date: 20140711
  Serious: Yes (Other)
  Sender: FDA-Public Use
  Company Number: CA-ROCHE-1176029

PATIENT
  Age: 43 Year
  Sex: Female
  Weight: 108 kg

DRUGS (7)
  1. AVASTIN [Suspect]
     Indication: OVARIAN CANCER
     Dosage: LAST DOSE OF INFUSION : 07/FEB/2013
     Route: 042
     Dates: start: 20121228
  2. AVASTIN [Suspect]
     Route: 042
     Dates: start: 20130613, end: 20130905
  3. BUPROPION [Concomitant]
     Indication: DEPRESSION
  4. DEXAMETHASONE [Concomitant]
     Indication: NEOPLASM MALIGNANT
  5. CISPLATIN [Concomitant]
     Indication: OVARIAN CANCER
     Route: 065
     Dates: start: 20121106, end: 20130307
  6. GEMZAR [Concomitant]
     Indication: OVARIAN CANCER
     Route: 065
     Dates: start: 20121106, end: 20130307
  7. EMEND [Concomitant]

REACTIONS (11)
  - Haemorrhoids [Recovering/Resolving]
  - Hypertension [Recovering/Resolving]
  - Chest discomfort [Unknown]
  - Fatigue [Recovering/Resolving]
  - Nausea [Recovering/Resolving]
  - Dyspnoea [Not Recovered/Not Resolved]
  - Epistaxis [Not Recovered/Not Resolved]
  - Gastrointestinal haemorrhage [Recovering/Resolving]
  - Rhinitis [Recovered/Resolved]
  - Nasopharyngitis [Recovered/Resolved]
  - Disease progression [Unknown]
